FAERS Safety Report 15674831 (Version 1)
Quarter: 2018Q4

REPORT INFORMATION
  Report Type: Spontaneous
  Country: US (occurrence: US)
  Receive Date: 20181130
  Receipt Date: 20181130
  Transmission Date: 20190205
  Serious: Yes (Death)
  Sender: FDA-Public Use
  Company Number: US-ROCHE-2223524

PATIENT
  Age: 76 Year
  Sex: Male

DRUGS (1)
  1. ESBRIET [Suspect]
     Active Substance: PIRFENIDONE
     Indication: PULMONARY FIBROSIS
     Dosage: STRENGTH; 267 MG ONGOING; UNKNOWN
     Route: 048
     Dates: start: 20171220

REACTIONS (1)
  - Death [Fatal]

NARRATIVE: CASE EVENT DATE: 20181128
